FAERS Safety Report 13501739 (Version 1)
Quarter: 2017Q2

REPORT INFORMATION
  Report Type: Spontaneous
  Country: US (occurrence: US)
  Receive Date: 20170502
  Receipt Date: 20170502
  Transmission Date: 20170830
  Serious: Yes (Other)
  Sender: FDA-Public Use
  Company Number: US-AUROBINDO-AUR-APL-2017-32379

PATIENT

DRUGS (2)
  1. CARVEDILOL. [Suspect]
     Active Substance: CARVEDILOL
     Indication: HYPERTENSION
     Dosage: UNK
     Route: 065
  2. RIFAPENTINE [Interacting]
     Active Substance: RIFAPENTINE
     Indication: TUBERCULOSIS
     Dosage: 900 MG, EVERY WEEK
     Route: 065

REACTIONS (2)
  - Drug interaction [Unknown]
  - Hypertension [Unknown]
